FAERS Safety Report 21088980 (Version 1)
Quarter: 2022Q3

REPORT INFORMATION
  Report Type: Spontaneous
  Country: KR (occurrence: KR)
  Receive Date: 20220715
  Receipt Date: 20220715
  Transmission Date: 20221027
  Serious: Yes (Other)
  Sender: FDA-Public Use
  Company Number: KR-SA-2019SA309995

PATIENT
  Age: 90 Year
  Sex: Female

DRUGS (2)
  1. ZOLPIDEM TARTRATE [Suspect]
     Active Substance: ZOLPIDEM TARTRATE
     Dosage: 0.5 DF, QD
     Route: 048
  2. ABILIFY [Concomitant]
     Active Substance: ARIPIPRAZOLE
     Dosage: UNK UNK, UNK
     Route: 048

REACTIONS (2)
  - Dementia [Not Recovered/Not Resolved]
  - Drug ineffective [Not Recovered/Not Resolved]
